FAERS Safety Report 18359793 (Version 1)
Quarter: 2020Q4

REPORT INFORMATION
  Report Type: Spontaneous
  Country: US (occurrence: US)
  Receive Date: 20201007
  Receipt Date: 20201007
  Transmission Date: 20210114
  Serious: Yes (Hospitalization)
  Sender: FDA-Public Use
  Company Number: None

PATIENT
  Age: 70 Year
  Sex: Male

DRUGS (1)
  1. ALBUTEROL (ALBUTEROL 90MCG/ACTUAT (CFC-F) INHL,ORAL,18GM DOSE COUNTER) [Suspect]
     Active Substance: ALBUTEROL
     Indication: ASTHMA
     Dates: start: 20180411, end: 20200901

REACTIONS (2)
  - Atrial fibrillation [None]
  - Dyspnoea [None]

NARRATIVE: CASE EVENT DATE: 20200730
